FAERS Safety Report 4587076-6 (Version None)
Quarter: 2005Q1

REPORT INFORMATION
  Report Type: 
  Country: None (occurrence: None)
  Receive Date: 20050218
  Receipt Date: 20050210
  Transmission Date: 20050727
  Serious: Yes (Other)
  Sender: FDA-Public Use
  Company Number: PHFR2005GB00868

PATIENT

DRUGS (5)
  1. IMIPRAM TAB [Suspect]
     Dosage: 50 MG NOCTE
  2. FLUOXETINE [Concomitant]
  3. ASPIRIN [Concomitant]
  4. DIURETICS [Concomitant]
  5. ALBUTEROL [Concomitant]

REACTIONS (1)
  - PULMONARY HYPERTENSION [None]
